FAERS Safety Report 15626244 (Version 5)
Quarter: 2020Q3

REPORT INFORMATION
  Report Type: Spontaneous
  Country: US (occurrence: US)
  Receive Date: 20181116
  Receipt Date: 20200929
  Transmission Date: 20201102
  Serious: Yes (Hospitalization, Disabling, Other)
  Sender: FDA-Public Use
  Company Number: US-SA-2018SA312410

PATIENT

DRUGS (2)
  1. AUBAGIO [Suspect]
     Active Substance: TERIFLUNOMIDE
     Dosage: 14 MG, QD
     Route: 048
     Dates: start: 20170128
  2. AUBAGIO [Suspect]
     Active Substance: TERIFLUNOMIDE
     Indication: MULTIPLE SCLEROSIS
     Dosage: 14 MG, QD
     Route: 048
     Dates: start: 20161229

REACTIONS (18)
  - Hallucination [Unknown]
  - Multiple sclerosis [Unknown]
  - Arthralgia [Unknown]
  - Fall [Unknown]
  - Asthenia [Unknown]
  - Condition aggravated [Unknown]
  - Optic nerve disorder [Unknown]
  - Psoriatic arthropathy [Unknown]
  - Chills [Unknown]
  - Muscular weakness [Unknown]
  - Urinary tract infection [Unknown]
  - Pain in extremity [Unknown]
  - Dementia [Unknown]
  - Visual impairment [Unknown]
  - Walking aid user [Unknown]
  - Neuropathy peripheral [Unknown]
  - Incontinence [Unknown]
  - Arthritis [Not Recovered/Not Resolved]
